FAERS Safety Report 15351449 (Version 2)
Quarter: 2018Q3

REPORT INFORMATION
  Report Type: Report from Study
  Country: DE (occurrence: DE)
  Receive Date: 20180905
  Receipt Date: 20180921
  Transmission Date: 20181010
  Serious: Yes (Hospitalization, Other)
  Sender: FDA-Public Use
  Company Number: DE-ASTELLAS-2018US038852

PATIENT
  Age: 52 Year
  Sex: Female

DRUGS (1)
  1. TACROLIMUS. [Suspect]
     Active Substance: TACROLIMUS
     Indication: RENAL TRANSPLANT
     Route: 048
     Dates: start: 20180511, end: 20180804

REACTIONS (3)
  - Urosepsis [Recovered/Resolved]
  - Toxicity to various agents [Recovered/Resolved]
  - Transplant failure [Unknown]

NARRATIVE: CASE EVENT DATE: 20180803
